FAERS Safety Report 12645546 (Version 1)
Quarter: 2016Q3

REPORT INFORMATION
  Report Type: Spontaneous
  Country: PL (occurrence: PL)
  Receive Date: 20160811
  Receipt Date: 20160811
  Transmission Date: 20161109
  Serious: Yes (Other)
  Sender: FDA-Public Use
  Company Number: PL-MYLANLABS-2016M1032797

PATIENT

DRUGS (1)
  1. OMEPRAZOLE. [Suspect]
     Active Substance: OMEPRAZOLE
     Indication: PROPHYLAXIS
     Dosage: UNK

REACTIONS (5)
  - Aspartate aminotransferase increased [Unknown]
  - Drug intolerance [Unknown]
  - Exposure during pregnancy [Unknown]
  - Alanine aminotransferase increased [Unknown]
  - Toxoplasmosis [Unknown]
